FAERS Safety Report 23564914 (Version 1)
Quarter: 2024Q1

REPORT INFORMATION
  Report Type: Spontaneous
  Country: IN (occurrence: IN)
  Receive Date: 20240226
  Receipt Date: 20240226
  Transmission Date: 20240409
  Serious: Yes (Hospitalization)
  Sender: FDA-Public Use
  Company Number: IN-AMGEN-INDSP2024036282

PATIENT
  Age: 22 Year
  Sex: Male

DRUGS (4)
  1. FILGRASTIM [Suspect]
     Active Substance: FILGRASTIM
     Indication: Acute lymphocytic leukaemia
     Dosage: 5 MICROGRAM/KILOGRAM (5 MICROGRAMS/KG/DOSE FOR A TOTAL OF SIX DOSES)
     Route: 058
  2. FLUDARABINE [Concomitant]
     Active Substance: FLUDARABINE PHOSPHATE
     Indication: Acute lymphocytic leukaemia
     Dosage: 30 MILLIGRAM/SQ. METER, QD (30-MINUTE INTRAVENOUS INFUSION AT A DOSE OF 30 MG/M2 DAILY FROM DAYS 1 T
     Route: 042
  3. CYTARABINE [Concomitant]
     Active Substance: CYTARABINE
     Indication: Acute lymphocytic leukaemia
     Dosage: 2 GRAM PER SQUARE METRE, QD (2 G/M2 DAILY FOR FOUR HOURS, STARTING FOUR HOURS AFTER FLUDARABINE ON D
     Route: 042
  4. BORTEZOMIB [Concomitant]
     Active Substance: BORTEZOMIB
     Indication: Acute lymphocytic leukaemia
     Dosage: 1.3 MILLIGRAM/SQ. METER (1.3 MG/M2 ON DAYS 1, 4, 8, AND 11)
     Route: 058

REACTIONS (3)
  - Febrile neutropenia [Unknown]
  - Acute lymphocytic leukaemia [Unknown]
  - Staphylococcal infection [Unknown]
